FAERS Safety Report 10690191 (Version 1)
Quarter: 2015Q1

REPORT INFORMATION
  Report Type: Spontaneous
  Country: US (occurrence: None)
  Receive Date: 20150102
  Receipt Date: 20150102
  Transmission Date: 20150720
  Serious: Yes (Other)
  Sender: FDA-Public Use
  Company Number: None

PATIENT
  Age: 55 Year
  Sex: Female

DRUGS (1)
  1. NEUPOGEN [Suspect]
     Active Substance: FILGRASTIM
     Indication: BREAST CANCER
     Dosage: 300 UG SC DAILY FOR 10 DAYS CYCLE
     Dates: start: 20141213

REACTIONS (2)
  - Fatigue [None]
  - Palpitations [None]

NARRATIVE: CASE EVENT DATE: 20141230
